FAERS Safety Report 16304080 (Version 1)
Quarter: 2019Q2

REPORT INFORMATION
  Report Type: Spontaneous
  Country: US (occurrence: US)
  Receive Date: 20190513
  Receipt Date: 20190513
  Transmission Date: 20190711
  Serious: Yes (Hospitalization, Other)
  Sender: FDA-Public Use
  Company Number: US-BAYER-2019-092628

PATIENT
  Sex: Male

DRUGS (3)
  1. METHOTREXATE. [Concomitant]
     Active Substance: METHOTREXATE
     Dosage: UNK
  2. CIPRO [Suspect]
     Active Substance: CIPROFLOXACIN HYDROCHLORIDE
     Dosage: UNK
     Route: 065
  3. HUMIRA [Suspect]
     Active Substance: ADALIMUMAB
     Indication: CROHN^S DISEASE
     Dosage: 40 MG, Q2WK
     Route: 058
     Dates: start: 20181229

REACTIONS (5)
  - Liver function test increased [Recovering/Resolving]
  - Anal infection [Recovering/Resolving]
  - Constipation [Recovered/Resolved]
  - Anaphylactic reaction [Recovered/Resolved]
  - Anal stenosis [Recovering/Resolving]
